FAERS Safety Report 6278137-4 (Version None)
Quarter: 2009Q3

REPORT INFORMATION
  Report Type: 
  Country: None (occurrence: None)
  Receive Date: 20090722
  Receipt Date: 20090716
  Transmission Date: 20100115
  Serious: Yes (Other)
  Sender: FDA-Public Use
  Company Number: FR-ABBOTT-09P-056-0583326-00

PATIENT
  Sex: Female
  Weight: 80 kg

DRUGS (2)
  1. KALETRA [Suspect]
     Indication: HIV INFECTION
     Dosage: DAILY DOSE: 4 TABLETS
     Route: 048
     Dates: start: 20020209, end: 20090622
  2. INVIRASE [Suspect]
     Indication: HIV INFECTION
     Route: 048
     Dates: start: 20020209, end: 20090622

REACTIONS (1)
  - TENDONITIS [None]
